FAERS Safety Report 7334159-3 (Version None)
Quarter: 2011Q1

REPORT INFORMATION
  Report Type: 
  Country: None (occurrence: None)
  Receive Date: 20110307
  Receipt Date: 20100104
  Transmission Date: 20110831
  Serious: No
  Sender: FDA-Public Use
  Company Number: US-BAYER-201010533NA

PATIENT
  Sex: Female
  Weight: 61.364 kg

DRUGS (2)
  1. LEXAPRO [Concomitant]
  2. MIRENA [Suspect]
     Indication: CONTRACEPTION
     Dosage: 30 ?G/D, CONT
     Route: 015
     Dates: start: 20091231, end: 20100103

REACTIONS (2)
  - ABDOMINAL PAIN LOWER [None]
  - DEVICE EXPULSION [None]
